FAERS Safety Report 17130451 (Version 1)
Quarter: 2019Q4

REPORT INFORMATION
  Report Type: Spontaneous
  Country: CN (occurrence: CN)
  Receive Date: 20191209
  Receipt Date: 20191209
  Transmission Date: 20200122
  Serious: Yes (Life-Threatening, Hospitalization, Other)
  Sender: FDA-Public Use
  Company Number: CN-ASTRAZENECA-2019SF76232

PATIENT
  Age: 26219 Day
  Sex: Female
  Weight: 63.1 kg

DRUGS (3)
  1. BAYASPIRIN [Suspect]
     Active Substance: ASPIRIN
     Indication: ANTIPLATELET THERAPY
     Dosage: NON AZ
     Route: 065
     Dates: start: 20191125, end: 20191125
  2. BAYASPIRIN [Suspect]
     Active Substance: ASPIRIN
     Indication: ANTIPLATELET THERAPY
     Dosage: NON AZ
     Route: 065
     Dates: start: 20191126, end: 20191127
  3. BRILINTA [Suspect]
     Active Substance: TICAGRELOR
     Route: 048
     Dates: start: 20191123, end: 20191127

REACTIONS (5)
  - Haemorrhage intracranial [Unknown]
  - Nausea [Unknown]
  - Intraventricular haemorrhage [Unknown]
  - Subarachnoid haemorrhage [Unknown]
  - Brain herniation [Unknown]

NARRATIVE: CASE EVENT DATE: 20191127
